FAERS Safety Report 7475425-0 (Version None)
Quarter: 2011Q2

REPORT INFORMATION
  Report Type: 
  Country: None (occurrence: None)
  Receive Date: 20110512
  Receipt Date: 20110428
  Transmission Date: 20111010
  Serious: Yes (Hospitalization)
  Sender: FDA-Public Use
  Company Number: GR-MYLANLABS-2011S1009073

PATIENT
  Age: 67 Year
  Sex: Male

DRUGS (8)
  1. BENSERAZIDE [Concomitant]
  2. CLOPIDOGREL [Concomitant]
  3. METFORMIN HCL [Suspect]
     Indication: TYPE 2 DIABETES MELLITUS
     Route: 048
  4. SIMVASTATIN [Concomitant]
  5. VILDAGLIPTIN [Suspect]
     Indication: TYPE 2 DIABETES MELLITUS
     Route: 048
  6. LEVODOPA [Concomitant]
  7. DOMPERIDONE [Concomitant]
  8. DONEPEZIL [Concomitant]

REACTIONS (1)
  - PEMPHIGOID [None]
